FAERS Safety Report 6699371-5 (Version None)
Quarter: 2010Q2

REPORT INFORMATION
  Report Type: 
  Country: None (occurrence: None)
  Receive Date: 20100427
  Receipt Date: 20100419
  Transmission Date: 20101027
  Serious: Yes (Other)
  Sender: FDA-Public Use
  Company Number: BR-ABBOTT-10P-020-0639582-00

PATIENT
  Sex: Female
  Weight: 52 kg

DRUGS (6)
  1. HUMIRA [Suspect]
     Indication: RHEUMATOID ARTHRITIS
     Route: 058
  2. ATENOLOL [Concomitant]
     Indication: HYPERTENSION
     Route: 048
  3. CALCIUM CITRATE [Concomitant]
     Indication: OSTEOPOROSIS
     Route: 048
  4. ENDRONAX [Concomitant]
     Indication: OSTEOPOROSIS
     Route: 048
  5. AMITRIPTYLINE [Concomitant]
     Indication: EMOTIONAL DISORDER
     Route: 048
  6. METICORTEN [Concomitant]
     Indication: RHEUMATOID ARTHRITIS
     Route: 048

REACTIONS (2)
  - FALL [None]
  - FEMUR FRACTURE [None]
